FAERS Safety Report 11910299 (Version 1)
Quarter: 2016Q1

REPORT INFORMATION
  Report Type: Spontaneous
  Country: MY (occurrence: MY)
  Receive Date: 20160112
  Receipt Date: 20160112
  Transmission Date: 20160526
  Serious: Yes (Other)
  Sender: FDA-Public Use
  Company Number: MY-SUN PHARMACEUTICAL INDUSTRIES LTD-2015R3-109591

PATIENT
  Age: 29 Year
  Sex: Female

DRUGS (1)
  1. DIFNAL [Suspect]
     Active Substance: DICLOFENAC SODIUM
     Indication: DYSMENORRHOEA
     Dosage: 150 MG, DAILY
     Route: 048

REACTIONS (3)
  - Face oedema [Recovered/Resolved]
  - Pruritus [Recovered/Resolved]
  - Rash maculo-papular [Recovered/Resolved]

NARRATIVE: CASE EVENT DATE: 20140612
